FAERS Safety Report 12184977 (Version 2)
Quarter: 2016Q2

REPORT INFORMATION
  Report Type: Report from Study
  Country: CA (occurrence: CA)
  Receive Date: 20160316
  Receipt Date: 20160525
  Transmission Date: 20160815
  Serious: Yes (Hospitalization)
  Sender: FDA-Public Use
  Company Number: CA-TAKEDA-2016TUS004361

PATIENT
  Age: 50 Year
  Sex: Female

DRUGS (11)
  1. MULTI-VITAMIN [Concomitant]
     Active Substance: .ALPHA.-TOCOPHEROL ACETATE, DL-\ASCORBIC ACID\CYANOCOBALAMIN\FLUORIDE ION\FOLIC ACID\NIACIN\PYRIDOXINE\RIBOFLAVIN\THIAMINE\VITAMIN A\VITAMIN D
     Indication: NUTRITIONAL SUPPLEMENTATION
     Dosage: UNK UNK, QD
     Route: 048
     Dates: start: 20080410
  2. ESTROGEL [Concomitant]
     Active Substance: ESTRADIOL
     Indication: MENOPAUSE
     Dosage: UNK, QD
     Route: 061
     Dates: start: 20130121, end: 20160304
  3. VORTIOXETINE [Suspect]
     Active Substance: VORTIOXETINE
     Indication: DEPRESSION
     Dosage: 10 MG, QD
     Route: 048
     Dates: start: 20150304
  4. PROMETRIUM [Concomitant]
     Active Substance: PROGESTERONE
     Indication: MENOPAUSE
     Dosage: 100 MG, UNK
     Route: 048
     Dates: start: 20130121
  5. VITAMIN B12 [Concomitant]
     Active Substance: CYANOCOBALAMIN
     Indication: NUTRITIONAL SUPPLEMENTATION
     Dosage: 100 ?G, UNK
     Route: 048
     Dates: start: 20100101
  6. VITAMIN D [Concomitant]
     Active Substance: CHOLECALCIFEROL
     Indication: NUTRITIONAL SUPPLEMENTATION
     Dosage: 1000 IU, UNK
     Route: 048
     Dates: start: 20130121
  7. LEVOTHYROXINE. [Concomitant]
     Active Substance: LEVOTHYROXINE
     Indication: FATIGUE
     Dosage: 25 MG, UNK
     Route: 048
     Dates: start: 20120801
  8. VITAMIN B6 [Concomitant]
     Active Substance: PYRIDOXINE HYDROCHLORIDE
     Indication: NUTRITIONAL SUPPLEMENTATION
     Dosage: 25 MG, UNK
     Route: 048
     Dates: start: 20100101
  9. VENTOLIN [Concomitant]
     Active Substance: ALBUTEROL SULFATE
     Indication: BRONCHITIS
     Dosage: UNK
     Route: 048
     Dates: start: 20150522
  10. MSM/GLUCOSAMINE [Concomitant]
     Indication: NUTRITIONAL SUPPLEMENTATION
     Dosage: UNK UNK, QD
     Route: 048
     Dates: start: 20080410
  11. VITAMIN C [Concomitant]
     Active Substance: ASCORBIC ACID
     Indication: NUTRITIONAL SUPPLEMENTATION
     Dosage: 1000 IU, UNK
     Route: 048
     Dates: start: 20080410

REACTIONS (1)
  - Hypertension [Recovered/Resolved]

NARRATIVE: CASE EVENT DATE: 20160125
